FAERS Safety Report 7627844-7 (Version None)
Quarter: 2011Q3

REPORT INFORMATION
  Report Type: 
  Country: None (occurrence: None)
  Receive Date: 20110721
  Receipt Date: 20110523
  Transmission Date: 20111222
  Serious: Yes (Other)
  Sender: FDA-Public Use
  Company Number: AU-AMGEN-AUSSP2011026128

PATIENT
  Age: 35 Year
  Sex: Male

DRUGS (3)
  1. NEUPOGEN [Suspect]
     Indication: UNRELATED DONOR BONE MARROW TRANSPLANTATION THERAPY
     Dosage: 900 A?G, TID
     Dates: start: 20101028
  2. VITAMIN B6 [Concomitant]
  3. FOLIC ACID [Concomitant]

REACTIONS (4)
  - OEDEMA PERIPHERAL [None]
  - SKIN EXFOLIATION [None]
  - HYPERHIDROSIS [None]
  - AGITATION [None]
